FAERS Safety Report 7617685-9 (Version None)
Quarter: 2011Q3

REPORT INFORMATION
  Report Type: 
  Country: None (occurrence: None)
  Receive Date: 20110718
  Receipt Date: 20110706
  Transmission Date: 20111222
  Serious: Yes (Other)
  Sender: FDA-Public Use
  Company Number: US-JNJFOC-20110512691

PATIENT
  Age: 63 Year
  Sex: Female

DRUGS (4)
  1. ASPIRIN [Concomitant]
     Indication: CARDIAC DISORDER
     Route: 065
  2. LISTERINE WHITENING ORIGINAL PRE-BRUSH RINSE [Suspect]
     Indication: DENTAL CARE
     Route: 048
     Dates: start: 20110501, end: 20110519
  3. LISINOPRIL [Concomitant]
     Indication: HYPERTENSION
     Route: 065
  4. MULTI-VITAMINS [Concomitant]
     Indication: MEDICAL DIET
     Dosage: YEARS AGO
     Route: 065

REACTIONS (2)
  - SALIVARY HYPERSECRETION [None]
  - ORAL MUCOSA EROSION [None]
